FAERS Safety Report 17329668 (Version 1)
Quarter: 2020Q1

REPORT INFORMATION
  Report Type: Spontaneous
  Country: US (occurrence: US)
  Receive Date: 20200127
  Receipt Date: 20200127
  Transmission Date: 20200409
  Serious: No
  Sender: FDA-Public Use
  Company Number: None

PATIENT
  Sex: Male
  Weight: 114.75 kg

DRUGS (4)
  1. SPRYCEL [Suspect]
     Active Substance: DASATINIB
     Indication: CHRONIC MYELOID LEUKAEMIA
     Route: 048
     Dates: start: 20181001
  2. GABAPENTIN. [Concomitant]
     Active Substance: GABAPENTIN
  3. DULOXETINE. [Concomitant]
     Active Substance: DULOXETINE
  4. ZOLOFT [Concomitant]
     Active Substance: SERTRALINE HYDROCHLORIDE

REACTIONS (2)
  - Oesophageal disorder [None]
  - Dyspepsia [None]
